FAERS Safety Report 7283302-3 (Version None)
Quarter: 2011Q1

REPORT INFORMATION
  Report Type: 
  Country: None (occurrence: None)
  Receive Date: 20110209
  Receipt Date: 20110131
  Transmission Date: 20110831
  Serious: Yes (Hospitalization)
  Sender: FDA-Public Use
  Company Number: NL-JNJFOC-20101103005

PATIENT
  Age: 44 Year
  Sex: Female

DRUGS (10)
  1. TRAMAL [Suspect]
     Indication: ABDOMINAL PAIN
     Route: 065
  2. GEMZAR [Suspect]
     Indication: PANCREATIC CARCINOMA
     Dosage: ONCE WEEKLY FOR 3 WEEKS FOLLOWED BY ONE WEEK OF REST
     Route: 042
  3. PARACETAMOL [Suspect]
     Indication: ABDOMINAL PAIN
     Route: 065
  4. UNKNOWN MEDICATION [Suspect]
     Indication: PANCREATIC CARCINOMA
     Route: 065
  5. LACTULOSE [Concomitant]
     Indication: CONSTIPATION
     Route: 065
  6. MOVICOLON [Concomitant]
     Indication: CONSTIPATION
     Route: 065
  7. FENTANYL CITRATE [Suspect]
     Indication: ABDOMINAL PAIN
     Route: 065
  8. PARACETAMOL [Suspect]
     Route: 065
  9. ORAMORPH SR [Suspect]
     Indication: ABDOMINAL PAIN
     Route: 065
  10. DICLOFENAC [Suspect]
     Indication: ABDOMINAL PAIN
     Route: 065

REACTIONS (1)
  - CONSTIPATION [None]
